FAERS Safety Report 7463846-1 (Version None)
Quarter: 2011Q2

REPORT INFORMATION
  Report Type: 
  Country: None (occurrence: None)
  Receive Date: 20110506
  Receipt Date: 20110502
  Transmission Date: 20111010
  Serious: Yes (Other)
  Sender: FDA-Public Use
  Company Number: US-PFIZER INC-2011095020

PATIENT
  Sex: Female

DRUGS (4)
  1. LYRICA [Suspect]
     Dosage: UNK
  2. CYMBALTA [Suspect]
     Dosage: UNK
  3. NEURONTIN [Suspect]
     Dosage: UNK
  4. SAVELLA [Suspect]
     Dosage: UNK

REACTIONS (11)
  - WEIGHT DECREASED [None]
  - EATING DISORDER [None]
  - DRUG DEPENDENCE [None]
  - MALAISE [None]
  - FEELING ABNORMAL [None]
  - DRUG INEFFECTIVE [None]
  - INSOMNIA [None]
  - WITHDRAWAL SYNDROME [None]
  - PAIN [None]
  - VOMITING [None]
  - WEIGHT INCREASED [None]
